FAERS Safety Report 18507637 (Version 3)
Quarter: 2021Q1

REPORT INFORMATION
  Report Type: Spontaneous
  Country: US (occurrence: US)
  Receive Date: 20201116
  Receipt Date: 20210311
  Transmission Date: 20210419
  Serious: Yes (Other)
  Sender: FDA-Public Use
  Company Number: US-PFIZER INC-2020444836

PATIENT
  Age: 37 Year
  Sex: Female

DRUGS (4)
  1. PERCODAN [Interacting]
     Active Substance: ASPIRIN\OXYCODONE HYDROCHLORIDE
     Dosage: UNK (EVERY DAY FOR AT LEAST A YEAR PRIOR TO DELIVERY)
  2. LIDOCAINE. [Concomitant]
     Active Substance: LIDOCAINE
     Indication: ANAESTHESIA
     Dosage: 28 ML (WITH 1/200,000 EPINEPHRINE)
  3. BUTORPHANOL TARTRATE. [Suspect]
     Active Substance: BUTORPHANOL TARTRATE
     Indication: POSTOPERATIVE ANALGESIA
     Dosage: 2 MG (TOTAL VOLUME OF 10 ML)
     Route: 008
  4. EPINEPHRINE. [Concomitant]
     Active Substance: EPINEPHRINE
     Indication: ANAESTHESIA
     Dosage: UNK (11200,000 EPINEPHRINE IN DIVIDED DOSES)

REACTIONS (11)
  - Yawning [Unknown]
  - Retching [Unknown]
  - Sinus tachycardia [Recovered/Resolved]
  - Lacrimation increased [Unknown]
  - Drug withdrawal syndrome [Unknown]
  - Flushing [Unknown]
  - Hypotension [Recovered/Resolved]
  - Agitation [Recovered/Resolved]
  - Restlessness [Unknown]
  - Drug interaction [Unknown]
  - Nausea [Unknown]
